FAERS Safety Report 9169641 (Version 1)
Quarter: 2013Q1

REPORT INFORMATION
  Report Type: Spontaneous
  Country: US (occurrence: US)
  Receive Date: 20130318
  Receipt Date: 20130318
  Transmission Date: 20140127
  Serious: Yes (Other)
  Sender: FDA-Public Use
  Company Number: US-PFIZER INC-2013086140

PATIENT
  Age: 64 Year
  Sex: Female

DRUGS (4)
  1. PACLITAXEL [Suspect]
     Indication: OVARIAN CANCER
     Dosage: UNK
  2. PACLITAXEL [Suspect]
     Indication: METASTASES TO PERITONEUM
  3. CARBOPLATIN [Concomitant]
     Indication: OVARIAN CANCER
     Dosage: UNK
  4. CARBOPLATIN [Concomitant]
     Indication: METASTASES TO PERITONEUM

REACTIONS (1)
  - Toxic skin eruption [Recovered/Resolved]
